FAERS Safety Report 10194262 (Version 4)
Quarter: 2014Q4

REPORT INFORMATION
  Report Type: Report from Study
  Country: JP (occurrence: JP)
  Receive Date: 20140526
  Receipt Date: 20141201
  Transmission Date: 20150528
  Serious: Yes (Other)
  Sender: FDA-Public Use
  Company Number: JP-009507513-1405JPN010884

PATIENT
  Age: 56 Year
  Sex: Female
  Weight: 55 kg

DRUGS (5)
  1. LIVACT [Concomitant]
     Active Substance: AMINO ACIDS
     Indication: HEPATIC CIRRHOSIS
     Dosage: 1 DF, TID (FORMULATION POR)
     Route: 048
     Dates: start: 20131015
  2. PEGINTRON [Suspect]
     Active Substance: PEGINTERFERON ALFA-2B
     Indication: HEPATIC CIRRHOSIS
     Dosage: 50 MICROGRAM, QW
     Route: 058
     Dates: start: 20131015, end: 20131104
  3. PEGINTRON [Suspect]
     Active Substance: PEGINTERFERON ALFA-2B
     Dosage: 50 MICROGRAM, QW
     Route: 058
     Dates: start: 20131125, end: 20140210
  4. PEGINTRON [Suspect]
     Active Substance: PEGINTERFERON ALFA-2B
     Dosage: 60 MICROGRAM, QW
     Route: 058
     Dates: start: 20131105, end: 20131124
  5. REBETOL [Suspect]
     Active Substance: RIBAVIRIN
     Indication: HEPATIC CIRRHOSIS
     Dosage: 400 MG, QD
     Route: 048
     Dates: start: 20131022, end: 20140221

REACTIONS (1)
  - Hyperthyroidism [Not Recovered/Not Resolved]

NARRATIVE: CASE EVENT DATE: 20140121
